FAERS Safety Report 4756856-6 (Version None)
Quarter: 2005Q3

REPORT INFORMATION
  Report Type: 
  Country: None (occurrence: None)
  Receive Date: 20050830
  Receipt Date: 20050818
  Transmission Date: 20060218
  Serious: Yes (Hospitalization, Other)
  Sender: FDA-Public Use
  Company Number: US-JNJFOC-20041202671

PATIENT
  Age: 67 Year
  Sex: Male
  Weight: 86.18 kg

DRUGS (7)
  1. DURAGESIC-100 [Suspect]
     Route: 062
  2. DURAGESIC-100 [Suspect]
     Route: 062
  3. OXYCODONE [Concomitant]
     Route: 048
  4. OXYCODONE [Concomitant]
     Route: 048
  5. OXYCODONE [Concomitant]
     Route: 048
  6. METOPROLOL [Concomitant]
  7. DIGOXIN [Concomitant]

REACTIONS (14)
  - AMNESIA [None]
  - ATRIAL FIBRILLATION [None]
  - BLOOD GLUCOSE DECREASED [None]
  - CONFUSIONAL STATE [None]
  - DEPRESSION [None]
  - DIPLOPIA [None]
  - DISTURBANCE IN ATTENTION [None]
  - DYSPNOEA [None]
  - FEELING ABNORMAL [None]
  - GALLBLADDER OPERATION [None]
  - HEPATIC ENZYME ABNORMAL [None]
  - LOSS OF CONSCIOUSNESS [None]
  - OVERDOSE [None]
  - SUICIDAL IDEATION [None]
